FAERS Safety Report 22153224 (Version 1)
Quarter: 2023Q1

REPORT INFORMATION
  Report Type: Spontaneous
  Country: US (occurrence: US)
  Receive Date: 20230329
  Receipt Date: 20230329
  Transmission Date: 20230418
  Serious: No
  Sender: FDA-Public Use
  Company Number: US-BRISTOL-MYERS SQUIBB COMPANY-2023-045176

PATIENT
  Age: 63 Year
  Sex: Male
  Weight: 91 kg

DRUGS (1)
  1. REVLIMID [Suspect]
     Active Substance: LENALIDOMIDE
     Indication: B-cell lymphoma
     Dosage: DAILY ON DAYS 1-21 EVERY 28 DAYS
     Route: 048
     Dates: start: 20230311

REACTIONS (4)
  - Urticaria [Not Recovered/Not Resolved]
  - Mouth swelling [Not Recovered/Not Resolved]
  - Lip swelling [Not Recovered/Not Resolved]
  - Off label use [Unknown]
